FAERS Safety Report 12080881 (Version 1)
Quarter: 2016Q1

REPORT INFORMATION
  Report Type: Spontaneous
  Country: US (occurrence: US)
  Receive Date: 20160216
  Receipt Date: 20160216
  Transmission Date: 20160526
  Serious: No
  Sender: FDA-Public Use
  Company Number: US-BAYER-2016-023494

PATIENT
  Age: 66 Year
  Sex: Female

DRUGS (4)
  1. SYNTHROID [Concomitant]
     Active Substance: LEVOTHYROXINE SODIUM
  2. ALEVE [Suspect]
     Active Substance: NAPROXEN SODIUM
     Indication: INFLAMMATION
     Dosage: 1 DF, BID (EVERY 12H)
     Route: 048
     Dates: start: 201510, end: 201510
  3. CORTISONE [Concomitant]
     Active Substance: CORTISONE\HYDROCORTISONE
  4. ALEVE [Suspect]
     Active Substance: NAPROXEN SODIUM
     Indication: INFLAMMATION
     Dosage: 1 DF, BID (EVERY 12H)
     Route: 048
     Dates: start: 201510, end: 201511

REACTIONS (3)
  - Blood pressure increased [Recovered/Resolved]
  - Product use issue [None]
  - Chest discomfort [Recovered/Resolved]

NARRATIVE: CASE EVENT DATE: 201510
